FAERS Safety Report 17108688 (Version 2)
Quarter: 2020Q1

REPORT INFORMATION
  Report Type: Spontaneous
  Country: US (occurrence: US)
  Receive Date: 20191203
  Receipt Date: 20200107
  Transmission Date: 20200409
  Serious: No
  Sender: FDA-Public Use
  Company Number: US-PERRIGO-19US013378

PATIENT
  Age: 76 Year
  Sex: Male
  Weight: 88.44 kg

DRUGS (8)
  1. GLUCOSAMINE CHONDROITIN            /01430901/ [Concomitant]
     Indication: ROUTINE HEALTH MAINTENANCE
     Dosage: 500 NG
     Route: 065
  2. ASPIRIN 81 [Concomitant]
     Active Substance: ASPIRIN
     Indication: PROPHYLAXIS
     Dosage: 81 MG
     Route: 065
     Dates: start: 2009
  3. OMEPRAZOLE. [Concomitant]
     Active Substance: OMEPRAZOLE
     Indication: GASTROOESOPHAGEAL REFLUX DISEASE
     Dosage: 40 MG
     Route: 065
     Dates: start: 2012
  4. IRBESARTAN. [Concomitant]
     Active Substance: IRBESARTAN
     Indication: HYPERTENSION
     Dosage: 75 MG
     Route: 065
     Dates: start: 2014
  5. ASPIRIN 81 [Concomitant]
     Active Substance: ASPIRIN
     Indication: ANTICOAGULANT THERAPY
  6. ATORVASTATIN [Concomitant]
     Active Substance: ATORVASTATIN
     Indication: BLOOD CHOLESTEROL INCREASED
     Dosage: 40 MG
     Route: 065
     Dates: start: 2014
  7. METOPROLOL. [Concomitant]
     Active Substance: METOPROLOL
     Indication: STENT PLACEMENT
     Dosage: 25 MG
     Route: 065
     Dates: start: 2014
  8. DICLOFENAC SODIUM. [Suspect]
     Active Substance: DICLOFENAC SODIUM
     Indication: PAIN
     Dosage: 2 G AT APPLICATION SITE, 1 TO 2 TIMES PER DAY
     Route: 061
     Dates: start: 20190905

REACTIONS (3)
  - Wrong technique in product usage process [Not Recovered/Not Resolved]
  - Contraindicated product administered [Not Recovered/Not Resolved]
  - Product administered at inappropriate site [Not Recovered/Not Resolved]

NARRATIVE: CASE EVENT DATE: 20190905
